FAERS Safety Report 17310302 (Version 1)
Quarter: 2020Q1

REPORT INFORMATION
  Report Type: Spontaneous
  Country: US (occurrence: US)
  Receive Date: 20200123
  Receipt Date: 20200123
  Transmission Date: 20200409
  Serious: No
  Sender: FDA-Public Use
  Company Number: US-ROCHE-2408340

PATIENT
  Sex: Female

DRUGS (1)
  1. RITUXAN [Suspect]
     Active Substance: RITUXIMAB
     Indication: RHEUMATOID ARTHRITIS
     Dosage: FORM STRENGTH: 10 MG/ML?PATIENT WAS TO TAKE WEEKS 0, 2, 6 THEN EVERY 8 WEEK.
     Route: 042
     Dates: start: 20190711

REACTIONS (1)
  - Infusion related reaction [Unknown]
